FAERS Safety Report 5965850-9 (Version None)
Quarter: 2008Q4

REPORT INFORMATION
  Report Type: 
  Country: None (occurrence: None)
  Receive Date: 20081125
  Receipt Date: 20081118
  Transmission Date: 20090506
  Serious: Yes (Hospitalization)
  Sender: FDA-Public Use
  Company Number: US-BIOGENIDEC-2008BI031333

PATIENT
  Age: 39 Year
  Sex: Female

DRUGS (1)
  1. TYSABRI [Suspect]
     Indication: MULTIPLE SCLEROSIS
     Route: 042
     Dates: start: 20080310, end: 20080718

REACTIONS (5)
  - BLADDER REPAIR [None]
  - BRONCHITIS [None]
  - GASTROENTERITIS VIRAL [None]
  - PNEUMONIA [None]
  - POST PROCEDURAL HAEMORRHAGE [None]
